FAERS Safety Report 7657189-0 (Version None)
Quarter: 2011Q3

REPORT INFORMATION
  Report Type: 
  Country: None (occurrence: None)
  Receive Date: 20110804
  Receipt Date: 20110728
  Transmission Date: 20111222
  Serious: Yes (Hospitalization)
  Sender: FDA-Public Use
  Company Number: CA-ELI_LILLY_AND_COMPANY-CA201107007928

PATIENT
  Age: 32 Year
  Sex: Male

DRUGS (1)
  1. ADCIRCA [Suspect]
     Dosage: UNK
     Dates: start: 20110126

REACTIONS (1)
  - HOSPITALISATION [None]
